FAERS Safety Report 6576728-4 (Version None)
Quarter: 2010Q1

REPORT INFORMATION
  Report Type: 
  Country: None (occurrence: None)
  Receive Date: 20100210
  Receipt Date: 20100126
  Transmission Date: 20100710
  Serious: Yes (Hospitalization)
  Sender: FDA-Public Use
  Company Number: NL-MEDIMMUNE-MEDI-0010462

PATIENT
  Sex: Male
  Weight: 4 kg

DRUGS (3)
  1. SYNAGIS [Suspect]
     Route: 030
     Dates: start: 20091230, end: 20091230
  2. SYNAGIS [Suspect]
     Route: 030
     Dates: start: 20100129, end: 20100129
  3. SODIUM CHLORIDE SPRAY [Concomitant]
     Route: 045
     Dates: start: 20091118

REACTIONS (9)
  - CONSTIPATION [None]
  - CRYING [None]
  - DYSPHONIA [None]
  - DYSPNOEA [None]
  - INCREASED VISCOSITY OF BRONCHIAL SECRETION [None]
  - NASOPHARYNGITIS [None]
  - PYREXIA [None]
  - UPPER RESPIRATORY TRACT INFECTION [None]
  - WHEEZING [None]
